FAERS Safety Report 11804109 (Version 1)
Quarter: 2015Q4

REPORT INFORMATION
  Report Type: Spontaneous
  Country: FR (occurrence: FR)
  Receive Date: 20151204
  Receipt Date: 20151204
  Transmission Date: 20160305
  Serious: Yes (Death)
  Sender: FDA-Public Use
  Company Number: FR-JNJFOC-20151011086

PATIENT
  Age: 86 Year
  Sex: Female
  Weight: 95 kg

DRUGS (17)
  1. XARELTO [Suspect]
     Active Substance: RIVAROXABAN
     Indication: ATRIAL FIBRILLATION
     Route: 048
     Dates: start: 20150529, end: 20150606
  2. SERESTA [Concomitant]
     Active Substance: OXAZEPAM
     Route: 065
  3. SMECTA [Concomitant]
     Active Substance: MONTMORILLONITE
     Route: 065
  4. XARELTO [Suspect]
     Active Substance: RIVAROXABAN
     Indication: THROMBOSIS PROPHYLAXIS
     Route: 048
     Dates: start: 20150529, end: 20150606
  5. FOLIC ACID. [Concomitant]
     Active Substance: FOLIC ACID
     Route: 065
  6. PAROXETINE [Concomitant]
     Active Substance: PAROXETINE\PAROXETINE HYDROCHLORIDE
     Route: 065
  7. CEFIXIME. [Concomitant]
     Active Substance: CEFIXIME
     Route: 065
  8. METFORMINE [Concomitant]
     Active Substance: METFORMIN HYDROCHLORIDE
     Route: 065
  9. ORAMORPH [Concomitant]
     Active Substance: MORPHINE SULFATE
     Route: 065
  10. PENTASA [Concomitant]
     Active Substance: MESALAMINE
     Indication: CROHN^S DISEASE
     Route: 065
  11. XARELTO [Suspect]
     Active Substance: RIVAROXABAN
     Indication: CEREBROVASCULAR ACCIDENT PROPHYLAXIS
     Route: 048
     Dates: start: 20150529, end: 20150606
  12. ACETYLSALICYLIC ACID [Concomitant]
     Active Substance: ASPIRIN
     Route: 065
     Dates: start: 20150529
  13. PARACETAMOL [Concomitant]
     Active Substance: ACETAMINOPHEN
     Route: 065
  14. TEMERIT [Concomitant]
     Active Substance: NEBIVOLOL
     Route: 065
  15. VALSARTAN. [Concomitant]
     Active Substance: VALSARTAN
     Route: 065
  16. JANUMET [Concomitant]
     Active Substance: METFORMIN HYDROCHLORIDE\SITAGLIPTIN PHOSPHATE
     Route: 065
  17. NOVORAPID [Concomitant]
     Active Substance: INSULIN ASPART
     Route: 065

REACTIONS (2)
  - Haemorrhage [Fatal]
  - Peripheral ischaemia [Fatal]

NARRATIVE: CASE EVENT DATE: 20150604
